FAERS Safety Report 8942205 (Version 1)
Quarter: 2012Q4

REPORT INFORMATION
  Report Type: Spontaneous
  Country: US (occurrence: None)
  Receive Date: 20121129
  Receipt Date: 20121129
  Transmission Date: 20130627
  Serious: Yes (Other)
  Sender: FDA-Public Use
  Company Number: None

PATIENT
  Age: 60 Year
  Sex: Female

DRUGS (1)
  1. ENBREL SURECLICK 50MG/ML 4/PK [Suspect]
     Indication: PSORIASIS
     Route: 050
     Dates: start: 20121016, end: 20121119

REACTIONS (1)
  - Drug hypersensitivity [None]
